FAERS Safety Report 21236132 (Version 2)
Quarter: 2022Q4

REPORT INFORMATION
  Report Type: Report from Study
  Country: US (occurrence: US)
  Receive Date: 20220822
  Receipt Date: 20221021
  Transmission Date: 20230112
  Serious: Yes (Other)
  Sender: FDA-Public Use
  Company Number: US-BRISTOL-MYERS SQUIBB COMPANY-2001-09-0072

PATIENT
  Age: 44 Year
  Sex: Female

DRUGS (3)
  1. THALOMID [Suspect]
     Active Substance: THALIDOMIDE
     Indication: Malignant melanoma
     Dosage: ESCALATE BY 100 MG INCREMENTS EVERY 1 TO 2 WEEKS UP TO AN INTENDED ?MAXIMUM DOSE OF 400 MG
     Route: 048
     Dates: start: 20010824, end: 20010920
  2. GRANULOCYTE COLONY-STIMULATING FACTOR NOS [Suspect]
     Active Substance: GRANULOCYTE COLONY-STIMULATING FACTOR NOS
     Indication: Malignant melanoma
     Route: 058
     Dates: start: 20010824, end: 20010906
  3. SENOKOT [Concomitant]
     Active Substance: SENNOSIDES
     Indication: Constipation
     Dosage: FREQUENCY TEXT: PRN
     Route: 065

REACTIONS (4)
  - Abortion spontaneous [Unknown]
  - Maternal exposure during pregnancy [Recovered/Resolved]
  - Pregnancy with contraceptive device [Unknown]
  - Pregnancy on contraceptive [Unknown]

NARRATIVE: CASE EVENT DATE: 20011018
